FAERS Safety Report 15006721 (Version 2)
Quarter: 2018Q2

REPORT INFORMATION
  Report Type: Report from Study
  Country: US (occurrence: US)
  Receive Date: 20180613
  Receipt Date: 20180614
  Transmission Date: 20180711
  Serious: No
  Sender: FDA-Public Use
  Company Number: US-US WORLDMEDS, LLC-USW201712-001750

PATIENT
  Age: 57 Year
  Sex: Male
  Weight: 72.57 kg

DRUGS (6)
  1. SINEMET CR [Concomitant]
     Active Substance: CARBIDOPA\LEVODOPA
  2. APOKYN [Suspect]
     Active Substance: APOMORPHINE HYDROCHLORIDE
     Indication: PARKINSON^S DISEASE
     Route: 058
     Dates: start: 20171208, end: 20171208
  3. AZILECT [Concomitant]
     Active Substance: RASAGILINE MESYLATE
  4. AMANTADINE. [Concomitant]
     Active Substance: AMANTADINE HYDROCHLORIDE
  5. SINEMET [Concomitant]
     Active Substance: CARBIDOPA\LEVODOPA
  6. ENTACAPONE. [Concomitant]
     Active Substance: ENTACAPONE

REACTIONS (6)
  - Dizziness [Recovered/Resolved]
  - Hypotension [Recovered/Resolved]
  - Visual impairment [Recovered/Resolved]
  - Hyperhidrosis [Recovered/Resolved]
  - Dysarthria [Recovered/Resolved]
  - Pallor [Recovered/Resolved]

NARRATIVE: CASE EVENT DATE: 20171208
